FAERS Safety Report 15508809 (Version 1)
Quarter: 2018Q4

REPORT INFORMATION
  Report Type: Spontaneous
  Country: US (occurrence: US)
  Receive Date: 20181010
  Receipt Date: 20181010
  Transmission Date: 20190205
  Serious: No
  Sender: FDA-Public Use
  Company Number: None

PATIENT
  Age: 66 Year
  Sex: Male
  Weight: 76.2 kg

DRUGS (1)
  1. VALSARTAN 320MG [Suspect]
     Active Substance: VALSARTAN
     Indication: BLOOD PRESSURE MEASUREMENT
     Dates: start: 2008, end: 2018

REACTIONS (10)
  - Weight decreased [None]
  - Arthralgia [None]
  - Headache [None]
  - Dizziness [None]
  - Fatigue [None]
  - Pruritus [None]
  - Product impurity [None]
  - Nasopharyngitis [None]
  - Back pain [None]
  - Rash [None]

NARRATIVE: CASE EVENT DATE: 201712
